FAERS Safety Report 9063484 (Version 1)
Quarter: 2013Q1

REPORT INFORMATION
  Report Type: Report from Study
  Country: US (occurrence: US)
  Receive Date: 20130131
  Receipt Date: 20130131
  Transmission Date: 20140127
  Serious: No
  Sender: FDA-Public Use
  Company Number: US-ABBOTT-12P-163-1006647-00

PATIENT
  Age: 35 None
  Sex: Female

DRUGS (4)
  1. HUMIRA [Suspect]
     Indication: ARTHRITIS
     Route: 058
     Dates: start: 20121022
  2. HUMIRA [Suspect]
     Indication: OSTEOARTHRITIS
  3. SUBOXONE [Concomitant]
     Indication: PAIN
  4. XANAX [Concomitant]
     Dosage: 1-2 MG

REACTIONS (9)
  - Off label use [Unknown]
  - Injection site pain [Recovered/Resolved]
  - Incorrect storage of drug [Not Recovered/Not Resolved]
  - Headache [Not Recovered/Not Resolved]
  - Back pain [Not Recovered/Not Resolved]
  - Local swelling [Not Recovered/Not Resolved]
  - Drug ineffective [Not Recovered/Not Resolved]
  - Anxiety [Not Recovered/Not Resolved]
  - Stress [Not Recovered/Not Resolved]
